FAERS Safety Report 4284508-8 (Version None)
Quarter: 2004Q1

REPORT INFORMATION
  Report Type: 
  Country: None (occurrence: None)
  Receive Date: 20040130
  Receipt Date: 20040119
  Transmission Date: 20041129
  Serious: Yes (Other)
  Sender: FDA-Public Use
  Company Number: 2003185866CH

PATIENT
  Age: 33 Year
  Sex: Female

DRUGS (2)
  1. PRODAFEM (MEDROXYPROGESTERONE ACETATE) TABLET, 2.5-10MG [Suspect]
     Indication: DYSMENORRHOEA
     Dosage: ORAL
     Route: 048
     Dates: start: 20031103, end: 20031106
  2. GLUCOPHAGE [Suspect]
     Indication: WEIGHT DECREASED
     Dosage: 500 MG, QD, ORAL
     Route: 048
     Dates: start: 20031028, end: 20031106

REACTIONS (1)
  - HYPOACUSIS [None]
